FAERS Safety Report 11916768 (Version 6)
Quarter: 2017Q1

REPORT INFORMATION
  Report Type: Spontaneous
  Country: US (occurrence: US)
  Receive Date: 20160114
  Receipt Date: 20170328
  Transmission Date: 20170428
  Serious: Yes (Hospitalization)
  Sender: FDA-Public Use
  Company Number: US-ELI_LILLY_AND_COMPANY-US201512007249

PATIENT
  Age: 11 Year
  Sex: Female
  Weight: 32 kg

DRUGS (19)
  1. AMBRISENTAN [Suspect]
     Active Substance: AMBRISENTAN
     Indication: SCLERODERMA
     Dosage: 5 MG, QD
     Route: 048
  2. AMBRISENTAN [Suspect]
     Active Substance: AMBRISENTAN
     Indication: CONNECTIVE TISSUE DISORDER
     Dosage: 5 MG, QD
     Route: 048
     Dates: start: 20150827
  3. CARDURA [Concomitant]
     Active Substance: DOXAZOSIN MESYLATE
  4. TYLENOL [Concomitant]
     Active Substance: ACETAMINOPHEN
  5. CELLCEPT [Concomitant]
     Active Substance: MYCOPHENOLATE MOFETIL\MYCOPHENOLATE MOFETIL HYDROCHLORIDE
  6. AMBRISENTAN [Suspect]
     Active Substance: AMBRISENTAN
     Indication: PULMONARY HYPERTENSION
     Dosage: 5 MG, QD
     Route: 048
     Dates: start: 20150827
  7. TUMS ULTRA [Concomitant]
     Active Substance: CALCIUM CARBONATE
  8. CHOLECALCIFEROL [Concomitant]
     Active Substance: CHOLECALCIFEROL
  9. OXYGEN. [Concomitant]
     Active Substance: OXYGEN
  10. ZOFRAN [Concomitant]
     Active Substance: ONDANSETRON HYDROCHLORIDE
  11. ALBUTEROL                          /00139501/ [Concomitant]
     Active Substance: ALBUTEROL
  12. MOTRIN [Concomitant]
     Active Substance: IBUPROFEN
  13. ADCIRCA [Suspect]
     Active Substance: TADALAFIL
     Indication: PRODUCT USED FOR UNKNOWN INDICATION
     Dosage: UNK, UNKNOWN
     Route: 065
  14. BENADRYL [Concomitant]
     Active Substance: DIPHENHYDRAMINE HYDROCHLORIDE
  15. ORENITRAM [Suspect]
     Active Substance: TREPROSTINIL
     Indication: SCLERODERMA
     Dosage: 1 DF, TID
     Route: 048
  16. ORENITRAM [Suspect]
     Active Substance: TREPROSTINIL
     Indication: PULMONARY HYPERTENSION
  17. PREDNISONE. [Concomitant]
     Active Substance: PREDNISONE
  18. PREVACID [Concomitant]
     Active Substance: LANSOPRAZOLE
  19. NIFEDICAL XL [Concomitant]
     Active Substance: NIFEDIPINE

REACTIONS (16)
  - Fatigue [Recovered/Resolved]
  - Headache [Recovered/Resolved]
  - Abdominal discomfort [Recovered/Resolved]
  - Diarrhoea [Recovered/Resolved]
  - Abdominal discomfort [Recovered/Resolved]
  - Pharyngitis streptococcal [Recovered/Resolved]
  - Diarrhoea [Recovered/Resolved]
  - Off label use [Not Recovered/Not Resolved]
  - Chest pain [Unknown]
  - Abdominal pain upper [Recovered/Resolved]
  - Chest pain [Recovered/Resolved]
  - Asthenia [Recovered/Resolved]
  - Protein urine present [Recovered/Resolved]
  - Constipation [Recovered/Resolved]
  - Dyspnoea [Recovered/Resolved]
  - Nasopharyngitis [Recovered/Resolved]

NARRATIVE: CASE EVENT DATE: 20150827
